FAERS Safety Report 19524228 (Version 3)
Quarter: 2021Q3

REPORT INFORMATION
  Report Type: Spontaneous
  Country: US (occurrence: US)
  Receive Date: 20210713
  Receipt Date: 20210823
  Transmission Date: 20211014
  Serious: Yes (Other)
  Sender: FDA-Public Use
  Company Number: US-AMGEN-USASP2021106267

PATIENT
  Age: 59 Year
  Sex: Female
  Weight: 72.1 kg

DRUGS (1)
  1. NEULASTA [Suspect]
     Active Substance: PEGFILGRASTIM
     Indication: NEUTROPENIA
     Dosage: UNK
     Route: 065

REACTIONS (2)
  - Metastases to central nervous system [Not Recovered/Not Resolved]
  - Device adhesion issue [Unknown]

NARRATIVE: CASE EVENT DATE: 20210602
